FAERS Safety Report 19593049 (Version 1)
Quarter: 2021Q3

REPORT INFORMATION
  Report Type: Spontaneous
  Country: US (occurrence: US)
  Receive Date: 20210721
  Receipt Date: 20210721
  Transmission Date: 20211014
  Serious: Yes (Hospitalization)
  Sender: FDA-Public Use
  Company Number: None

PATIENT
  Age: 70 Year
  Sex: Female
  Weight: 64.1 kg

DRUGS (2)
  1. DURVALUMAB 500MG/10ML [Suspect]
     Active Substance: DURVALUMAB
     Indication: ADENOCARCINOMA
     Route: 042
     Dates: start: 20201110
  2. DURVALUMAB 120MG/2.4ML [Suspect]
     Active Substance: DURVALUMAB
     Indication: ADENOCARCINOMA
     Route: 042
     Dates: start: 20201110

REACTIONS (3)
  - Vasculitis [None]
  - Pneumonia [None]
  - Anaemia [None]

NARRATIVE: CASE EVENT DATE: 20210708
